FAERS Safety Report 4780982-9 (Version None)
Quarter: 2005Q3

REPORT INFORMATION
  Report Type: 
  Country: None (occurrence: None)
  Receive Date: 20050928
  Receipt Date: 20050816
  Transmission Date: 20060218
  Serious: Yes (Other)
  Sender: FDA-Public Use
  Company Number: DE-BOEHRINGER INGELHEIM PHARMACEUTICALS, INC.-2005-DE-03219DE

PATIENT
  Sex: Male
  Weight: 82 kg

DRUGS (4)
  1. MICARDIS [Suspect]
  2. CLOPIDOGREL [Concomitant]
  3. BETA BLOCKER [Concomitant]
  4. STATIN [Concomitant]

REACTIONS (1)
  - CORONARY ARTERY RESTENOSIS [None]
